FAERS Safety Report 23951973 (Version 1)
Quarter: 2024Q2

REPORT INFORMATION
  Report Type: Spontaneous
  Country: US (occurrence: US)
  Receive Date: 20240607
  Receipt Date: 20240607
  Transmission Date: 20240715
  Serious: Yes (Death, Other)
  Sender: FDA-Public Use
  Company Number: US-LANTHEUS-LMI-2024-00680

PATIENT
  Age: 62 Year
  Sex: Male
  Weight: 86 kg

DRUGS (4)
  1. DEFINITY [Suspect]
     Active Substance: PERFLUTREN
     Indication: Echocardiogram
     Dosage: 2 VIALS OF DEFINITY (1.5 ML DEFINITY PREPARED IN 8.5 ML DILUENT)
     Dates: start: 20240516, end: 20240516
  2. DEFINITY [Suspect]
     Active Substance: PERFLUTREN
     Dosage: 1 VIAL OF DEFINITY (1.5 ML DEFINITY PREPARED IN 8.5 ML DILUENT)
     Dates: start: 20240517, end: 20240517
  3. DEFINITY [Suspect]
     Active Substance: PERFLUTREN
     Dosage: 1 VIAL OF DEFINITY (1.5 ML DEFINITY PREPARED IN 8.5 ML DILUENT)
     Dates: start: 202405, end: 202405
  4. DEFINITY [Suspect]
     Active Substance: PERFLUTREN
     Dosage: 1 VIAL OF DEFINITY (1.5 ML DEFINITY PREPARED IN 8.5 ML DILUENT)
     Dates: start: 202405, end: 202405

REACTIONS (3)
  - Death [Fatal]
  - Myocardial infarction [Unknown]
  - Inappropriate schedule of product administration [Unknown]

NARRATIVE: CASE EVENT DATE: 20240516
